FAERS Safety Report 17978633 (Version 1)
Quarter: 2020Q3

REPORT INFORMATION
  Report Type: Spontaneous
  Country: US (occurrence: US)
  Receive Date: 20200703
  Receipt Date: 20200703
  Transmission Date: 20201103
  Serious: No
  Sender: FDA-Public Use
  Company Number: US-ELI_LILLY_AND_COMPANY-US202007000913

PATIENT
  Age: 65 Year
  Sex: Female

DRUGS (2)
  1. METFORMIN [Concomitant]
     Active Substance: METFORMIN HYDROCHLORIDE
     Indication: TYPE 2 DIABETES MELLITUS
     Dosage: 1000 INTERNATIONAL UNIT, DAILY
  2. TRULICITY [Suspect]
     Active Substance: DULAGLUTIDE
     Indication: TYPE 2 DIABETES MELLITUS
     Dosage: 0.75 MG, UNKNOWN
     Route: 065

REACTIONS (5)
  - Incorrect dose administered [Recovering/Resolving]
  - Injection site bruising [Recovering/Resolving]
  - Injury associated with device [Recovering/Resolving]
  - Injection site haemorrhage [Recovering/Resolving]
  - Product administered at inappropriate site [Recovering/Resolving]

NARRATIVE: CASE EVENT DATE: 20200701
